FAERS Safety Report 8367110-8 (Version None)
Quarter: 2012Q1

REPORT INFORMATION
  Report Type: 
  Country: None (occurrence: None)
  Receive Date: 20120323
  Receipt Date: 20110726
  Transmission Date: 20120608
  Serious: Yes (Other)
  Sender: FDA-Public Use
  Company Number: 163-21880-11073297

PATIENT
  Age: 60 Year
  Sex: Female

DRUGS (2)
  1. REVLIMID [Suspect]
     Indication: MULTIPLE MYELOMA
     Dosage: 5 MG, DAILY FOR 21 DAYS EVERY 28, PO
     Route: 048
     Dates: start: 20110524
  2. ANTIHISTAMINES (ANTIHISTAMINES) [Concomitant]

REACTIONS (4)
  - RENAL IMPAIRMENT [None]
  - PELVIC FRACTURE [None]
  - MYALGIA [None]
  - MUSCLE SPASMS [None]
